FAERS Safety Report 5300493-1 (Version None)
Quarter: 2007Q2

REPORT INFORMATION
  Report Type: 
  Country: None (occurrence: None)
  Receive Date: 20070418
  Receipt Date: 20070405
  Transmission Date: 20071010
  Serious: Yes (Other)
  Sender: FDA-Public Use
  Company Number: PHEH2007US04268

PATIENT
  Age: 67 Year
  Sex: Female

DRUGS (11)
  1. ZELNORM [Suspect]
     Indication: CONSTIPATION
     Dosage: 6 MG, BID
     Dates: start: 20061201, end: 20070404
  2. ATENOLOL [Concomitant]
     Indication: HYPERTENSION
  3. HYDROCHLOROTHIAZIDE [Concomitant]
     Indication: HYPERTENSION
  4. MIACALCIN [Concomitant]
     Indication: ARTHRITIS
  5. PREVACID [Concomitant]
     Dosage: 30 MG, UNK
  6. OXYCONTIN [Concomitant]
     Indication: PAIN
     Dosage: 60 MG, QD
  7. DURATUSS [Concomitant]
     Indication: SINUS DISORDER
     Dosage: UNK, PRN
  8. SYNTHROID [Concomitant]
     Dosage: 100 UG, UNK
  9. LIPITOR [Concomitant]
  10. AMBIEN [Concomitant]
     Dosage: 10 MG 1/3 TAB QPM
  11. MACROGOL [Concomitant]

REACTIONS (2)
  - CHEST PAIN [None]
  - STENT PLACEMENT [None]
